FAERS Safety Report 21711537 (Version 1)
Quarter: 2022Q4

REPORT INFORMATION
  Report Type: Other
  Country: GB (occurrence: GB)
  Receive Date: 20221212
  Receipt Date: 20221212
  Transmission Date: 20230112
  Serious: Yes (Other)
  Sender: FDA-Public Use
  Company Number: GB-MACLEODS PHARMA EU LTD-MAC2022038635

PATIENT

DRUGS (5)
  1. ESCITALOPRAM [Suspect]
     Active Substance: ESCITALOPRAM OXALATE
     Indication: Generalised anxiety disorder
     Dosage: UNK UNK, QD
     Route: 065
     Dates: start: 20181210
  2. ESCITALOPRAM [Suspect]
     Active Substance: ESCITALOPRAM OXALATE
     Dosage: 20 MILLIGRAM (WORSE EAR PRESSURE)
     Route: 065
  3. CYPROTERONE ACETATE\ETHINYL ESTRADIOL [Concomitant]
     Active Substance: CYPROTERONE ACETATE\ETHINYL ESTRADIOL
     Indication: Polycystic ovaries
     Dosage: UNK (SINCE 2016 UNTIL NOW)
     Route: 065
  4. MIRTAZAPINE [Concomitant]
     Active Substance: MIRTAZAPINE
     Indication: Product used for unknown indication
     Dosage: UNK
     Route: 065
  5. PROMETHAZINE [Concomitant]
     Active Substance: PROMETHAZINE HYDROCHLORIDE
     Indication: Poor quality sleep
     Dosage: UNK
     Route: 065

REACTIONS (5)
  - Eustachian tube dysfunction [Unknown]
  - Blood pressure increased [Unknown]
  - Balance disorder [Unknown]
  - Disorientation [Unknown]
  - Ear discomfort [Not Recovered/Not Resolved]
